FAERS Safety Report 18399492 (Version 1)
Quarter: 2020Q4

REPORT INFORMATION
  Report Type: Spontaneous
  Country: AR (occurrence: AR)
  Receive Date: 20201019
  Receipt Date: 20201019
  Transmission Date: 20210114
  Serious: Yes (Other)
  Sender: FDA-Public Use
  Company Number: AR-PFIZER INC-2020398817

PATIENT

DRUGS (1)
  1. SUTENT [Suspect]
     Active Substance: SUNITINIB MALATE
     Indication: METASTATIC RENAL CELL CARCINOMA
     Dosage: UNK

REACTIONS (14)
  - Decreased appetite [Unknown]
  - Paraesthesia [Unknown]
  - Bone disorder [Unknown]
  - Liver disorder [Unknown]
  - Dysphagia [Unknown]
  - Single functional kidney [Unknown]
  - Blister [Unknown]
  - Skin burning sensation [Unknown]
  - Sciatic nerve neuropathy [Unknown]
  - Pain in extremity [Unknown]
  - Oral pain [Unknown]
  - Dysgeusia [Unknown]
  - Feeding disorder [Unknown]
  - Drug hypersensitivity [Unknown]
